FAERS Safety Report 4363792-6 (Version None)
Quarter: 2004Q2

REPORT INFORMATION
  Report Type: 
  Country: None (occurrence: None)
  Receive Date: 20040524
  Receipt Date: 20040514
  Transmission Date: 20050107
  Serious: Yes (Life-Threatening)
  Sender: FDA-Public Use
  Company Number: US-MERCK-0405USA01107

PATIENT
  Age: 54 Year
  Sex: Female

DRUGS (4)
  1. VASOTEC [Concomitant]
     Indication: HYPERTENSION
     Route: 048
     Dates: end: 19980302
  2. VASOTEC [Concomitant]
     Route: 048
     Dates: start: 19980317
  3. PRINIVIL [Suspect]
     Indication: HYPERTENSION
     Route: 048
     Dates: start: 19980303, end: 19980304
  4. PRINIVIL [Suspect]
     Route: 048
     Dates: start: 19980305, end: 19980316

REACTIONS (6)
  - ANXIETY [None]
  - BLOOD PRESSURE INCREASED [None]
  - DRUG INEFFECTIVE [None]
  - HEART RATE INCREASED [None]
  - HEART RATE IRREGULAR [None]
  - SINUS TACHYCARDIA [None]
